FAERS Safety Report 4832589-2 (Version None)
Quarter: 2005Q4

REPORT INFORMATION
  Report Type: 
  Country: None (occurrence: None)
  Receive Date: 20051121
  Receipt Date: 20051108
  Transmission Date: 20060501
  Serious: Yes (Hospitalization, Other)
  Sender: FDA-Public Use
  Company Number: US-JNJFOC-20051102171

PATIENT
  Sex: Female

DRUGS (2)
  1. REMICADE [Suspect]
     Indication: RHEUMATOID ARTHRITIS
     Dosage: EVERY 7-8 WEEKS
     Route: 042
  2. METHOTREXATE [Concomitant]

REACTIONS (3)
  - ASTHENIA [None]
  - COUGH [None]
  - FALL [None]
